FAERS Safety Report 4694193-9 (Version None)
Quarter: 2005Q2

REPORT INFORMATION
  Report Type: 
  Country: None (occurrence: None)
  Receive Date: 20050616
  Receipt Date: 20050616
  Transmission Date: 20051028
  Serious: Yes (Hospitalization)
  Sender: FDA-Public Use
  Company Number: None

PATIENT
  Age: 42 Year
  Sex: Male
  Weight: 74.3899 kg

DRUGS (4)
  1. TAXOL [Suspect]
     Dosage: 84MG X 7, 79 MG X 1
     Route: 042
     Dates: start: 20050421, end: 20050607
  2. CARBOPLATIN [Suspect]
     Dosage: 173 MG X 8
     Route: 042
     Dates: start: 20050421, end: 20050607
  3. CETUXIMAB WEEKLY 400 MG/M2 [Suspect]
     Dosage: 852 MG X 1
     Dates: start: 20050324
  4. CETUXIMAB 250 MG/M2 [Suspect]
     Dosage: 532 MG X 4, 528 MG X 7, 492 MG X 1
     Dates: start: 20050329, end: 20050607

REACTIONS (5)
  - ASTHENIA [None]
  - DEHYDRATION [None]
  - FLUID INTAKE REDUCED [None]
  - NAUSEA [None]
  - VOMITING [None]
